FAERS Safety Report 10611562 (Version 1)
Quarter: 2014Q4

REPORT INFORMATION
  Report Type: Spontaneous
  Country: ES (occurrence: AU)
  Receive Date: 20141126
  Receipt Date: 20141126
  Transmission Date: 20150529
  Serious: Yes (Hospitalization)
  Sender: FDA-Public Use
  Company Number: AU-FRI-1000072725

PATIENT
  Age: 49 Year
  Sex: Female
  Weight: 60 kg

DRUGS (1)
  1. ACLIDINIUM [Suspect]
     Active Substance: ACLIDINIUM BROMIDE
     Dates: start: 20140414, end: 20140714

REACTIONS (5)
  - Product taste abnormal [Unknown]
  - Headache [Unknown]
  - Chest discomfort [Recovering/Resolving]
  - Dyspnoea [Recovering/Resolving]
  - Fatigue [Unknown]

NARRATIVE: CASE EVENT DATE: 20140630
